FAERS Safety Report 14672352 (Version 7)
Quarter: 2018Q3

REPORT INFORMATION
  Report Type: Report from Study
  Country: FI (occurrence: FI)
  Receive Date: 20180323
  Receipt Date: 20180914
  Transmission Date: 20181010
  Serious: Yes (Hospitalization)
  Sender: FDA-Public Use
  Company Number: FI-ROCHE-2092079

PATIENT
  Age: 51 Year
  Sex: Female
  Weight: 63 kg

DRUGS (13)
  1. OCRELIZUMAB. [Suspect]
     Active Substance: OCRELIZUMAB
     Indication: PRIMARY PROGRESSIVE MULTIPLE SCLEROSIS
     Dosage: SUBSEQUENTLY RECEIVED ON 01/FEB/2016,04/JUL/2016, 14/JUL/2016.?ADMINISTERED TWO INFUSIONS OF 300 MG
     Route: 042
     Dates: start: 20160118
  2. OCRELIZUMAB. [Suspect]
     Active Substance: OCRELIZUMAB
     Indication: PRIMARY PROGRESSIVE MULTIPLE SCLEROSIS
     Dosage: TWO INFUSIONS SEPARATED BY 14 DAYS IN EACH TREATMENT CYCLE OF 24 WEEKS AS PER PROTOCOL?SUBSEQUENT DO
     Route: 042
     Dates: start: 20110614, end: 20160117
  3. PARACETAMOL [Concomitant]
     Active Substance: ACETAMINOPHEN
     Dosage: 14/JUN/2011, 04/JUL/2016
     Route: 065
  4. ARCOXIA [Concomitant]
     Active Substance: ETORICOXIB
     Indication: ARTHRITIS
     Route: 065
     Dates: start: 20180221
  5. FOLVITE [Concomitant]
     Active Substance: FOLIC ACID
     Indication: ANAEMIA
     Route: 065
     Dates: start: 20180322
  6. OCRELIZUMAB. [Suspect]
     Active Substance: OCRELIZUMAB
     Route: 042
     Dates: start: 20170607
  7. OCRELIZUMAB. [Suspect]
     Active Substance: OCRELIZUMAB
     Route: 042
     Dates: start: 20171117
  8. ATARAX [Concomitant]
     Active Substance: HYDROXYZINE HYDROCHLORIDE
     Dosage: 01/APR/2014, 01/FEB/2016, 01/OCT/2013, 02/SEP/2014, 03/MAR/2015, 04/JUL/2016, 06/AUG/2015, 07/JUN/20
     Route: 065
  9. METHYLPREDNISOLONE. [Concomitant]
     Active Substance: METHYLPREDNISOLONE
     Dosage: 01/APR/2014, 01/FEB/2016, 01/OCT/2013, 02/SEP/2014, 03/MAR/2015, 04/JUL/2016, 06/AUG/2015, 07/JUN/20
     Route: 065
  10. MIRENA [Concomitant]
     Active Substance: LEVONORGESTREL
     Route: 065
     Dates: start: 20171004
  11. OCRELIZUMAB. [Suspect]
     Active Substance: OCRELIZUMAB
     Route: 042
     Dates: start: 20161219
  12. PARA?TABS [Concomitant]
     Active Substance: ACETAMINOPHEN
     Dosage: 13/DEC/2011, 29/NOV/2011
     Route: 065
  13. PARACETAMOL [Concomitant]
     Active Substance: ACETAMINOPHEN
     Dosage: 01/APR/2014, 01/FEB/2016, 01/OCT/2013, 02/SEP/2014, 03/MAR/2015, 06/AUG/2015, 07/JUN/2017, 13/NOV/20
     Route: 065

REACTIONS (1)
  - Pyrexia [Recovering/Resolving]

NARRATIVE: CASE EVENT DATE: 20180312
